FAERS Safety Report 7719628-6 (Version None)
Quarter: 2011Q3

REPORT INFORMATION
  Report Type: 
  Country: None (occurrence: None)
  Receive Date: 20110830
  Receipt Date: 20110816
  Transmission Date: 20111222
  Serious: Yes (Other)
  Sender: FDA-Public Use
  Company Number: US-BAYER-2011-074147

PATIENT
  Age: 31 Year
  Sex: Male
  Weight: 89 kg

DRUGS (3)
  1. ALKA-SELTZER PLUS MUCUS + CONGESTION [Suspect]
     Dosage: 2 DF, ONCE, BOTTLE COUNT 20S
     Route: 048
     Dates: start: 20110814
  2. ALKA-SELTZER LEMON LIME [Suspect]
     Dosage: UNK, BOTTLE COUNT 36S
     Route: 048
     Dates: start: 20110814
  3. ONE A DAY [Concomitant]

REACTIONS (4)
  - BOWEL MOVEMENT IRREGULARITY [None]
  - RECTAL HAEMORRHAGE [None]
  - FLATULENCE [None]
  - UNEVALUABLE EVENT [None]
